FAERS Safety Report 6492343-5 (Version None)
Quarter: 2009Q4

REPORT INFORMATION
  Report Type: 
  Country: None (occurrence: None)
  Receive Date: 20091214
  Receipt Date: 20091207
  Transmission Date: 20100525
  Serious: Yes (Hospitalization)
  Sender: FDA-Public Use
  Company Number: FR-SANOFI-AVENTIS-2009SA007081

PATIENT
  Age: 88 Year
  Sex: Female

DRUGS (4)
  1. AMAREL [Suspect]
     Route: 048
     Dates: start: 20030101, end: 20091026
  2. KETEK [Interacting]
     Route: 048
     Dates: start: 20091025, end: 20091026
  3. FLUIMUCIL [Concomitant]
     Dates: start: 20091025, end: 20091026
  4. COKENZEN [Concomitant]
     Route: 048

REACTIONS (2)
  - DRUG INTERACTION [None]
  - HYPOGLYCAEMIC COMA [None]
